FAERS Safety Report 9314008 (Version 1)
Quarter: 2013Q2

REPORT INFORMATION
  Report Type: Spontaneous
  Country: DE (occurrence: DE)
  Receive Date: 20130529
  Receipt Date: 20130529
  Transmission Date: 20140414
  Serious: Yes (Other)
  Sender: FDA-Public Use
  Company Number: DE-ROCHE-1214002

PATIENT
  Sex: Female
  Weight: 73 kg

DRUGS (6)
  1. HERCEPTIN [Suspect]
     Indication: BREAST CANCER
     Route: 042
     Dates: start: 200602, end: 200703
  2. HERCEPTIN [Suspect]
     Route: 042
     Dates: start: 20110118, end: 20120816
  3. NAVELBINE [Concomitant]
     Indication: BREAST CANCER METASTATIC
     Dosage: 6 CYCLES
     Route: 042
     Dates: start: 20111013, end: 20120322
  4. TYVERB [Concomitant]
     Indication: BREAST CANCER METASTATIC
     Route: 048
     Dates: start: 201209, end: 201304
  5. XELODA [Concomitant]
     Indication: BREAST CANCER METASTATIC
     Route: 048
     Dates: start: 201209, end: 201304
  6. TAXOTERE [Concomitant]
     Indication: BREAST CANCER METASTATIC
     Dosage: 3 CYCLES
     Route: 042
     Dates: start: 20110118, end: 20110501

REACTIONS (4)
  - Neoplasm malignant [Not Recovered/Not Resolved]
  - Metastases to lung [Not Recovered/Not Resolved]
  - Metastases to lymph nodes [Unknown]
  - Metastases to central nervous system [Recovered/Resolved]
